FAERS Safety Report 25596816 (Version 2)
Quarter: 2025Q4

REPORT INFORMATION
  Report Type: Spontaneous
  Country: JP (occurrence: JP)
  Receive Date: 20250723
  Receipt Date: 20251009
  Transmission Date: 20260117
  Serious: Yes (Other)
  Sender: OTSUKA
  Company Number: JP-MMM-Otsuka-JL1W5XIP

PATIENT
  Age: 88 Year
  Sex: Female

DRUGS (3)
  1. REXULTI [Suspect]
     Active Substance: BREXPIPRAZOLE
     Indication: Schizophrenia
     Dosage: 1 MG X ONCE/DAY
     Dates: start: 20241220, end: 20250109
  2. REXULTI [Suspect]
     Active Substance: BREXPIPRAZOLE
     Indication: Schizophrenia
     Dosage: UNK
     Dates: start: 20241206, end: 20241219
  3. REXULTI [Suspect]
     Active Substance: BREXPIPRAZOLE
     Dosage: 0.5 MG
     Dates: start: 20250110, end: 20250115

REACTIONS (1)
  - Dropped head syndrome [Recovered/Resolved]

NARRATIVE: CASE EVENT DATE: 20241220
